FAERS Safety Report 13261825 (Version 2)
Quarter: 2017Q1

REPORT INFORMATION
  Report Type: Report from Study
  Country: ES (occurrence: ES)
  Receive Date: 20170222
  Receipt Date: 20170317
  Transmission Date: 20170428
  Serious: Yes (Hospitalization)
  Sender: FDA-Public Use
  Company Number: ES-ROCHE-1896814

PATIENT
  Age: 53 Year
  Sex: Female
  Weight: 63 kg

DRUGS (15)
  1. NAB-PACLITAXEL [Suspect]
     Active Substance: PACLITAXEL
     Indication: NON-SMALL CELL LUNG CANCER STAGE IV
     Dosage: MOST RECENT DOSE 169 MG ON 15/FEB/2017 AT 11:50
     Route: 042
     Dates: start: 20170201
  2. RED BLOOD CELLS [Concomitant]
     Active Substance: HUMAN RED BLOOD CELL
     Indication: ANAEMIA
     Dosage: 2 UNITS; TRANFUSION
     Route: 065
     Dates: start: 20170220, end: 20170220
  3. LORAZEPAM. [Concomitant]
     Active Substance: LORAZEPAM
     Indication: PROPHYLAXIS
  4. ATEZOLIZUMAB [Suspect]
     Active Substance: ATEZOLIZUMAB
     Indication: NON-SMALL CELL LUNG CANCER STAGE IV
     Dosage: MOST RECENT DOSE 1200 MG ON 01/FEB/2017 AT 11:00
     Route: 042
     Dates: start: 20170201
  5. CARBOPLATIN. [Suspect]
     Active Substance: CARBOPLATIN
     Indication: NON-SMALL CELL LUNG CANCER STAGE IV
     Dosage: MOST RECENT DOSE 750 MG ON 01/FEB/2017 AT 13:00?AREA UNDER THE CONCENTRATION CURVE (AUC) 6 ON DAY 1
     Route: 042
     Dates: start: 20170201
  6. METAMIZOLE [Concomitant]
     Active Substance: METAMIZOLE
     Indication: PAIN
  7. DEXKETOPROFEN [Concomitant]
     Active Substance: DEXKETOPROFEN
     Indication: PAIN
  8. LEVETIRACETAM. [Concomitant]
     Active Substance: LEVETIRACETAM
     Indication: PAIN
  9. AMOXICILLIN/CLAVULANIC ACID [Concomitant]
     Active Substance: AMOXICILLIN\CLAVULANIC ACID
     Indication: NEUTROPENIA
     Route: 065
     Dates: start: 20170303
  10. IMIPENEM [Concomitant]
     Active Substance: IMIPENEM
     Indication: NEUTROPENIA
     Route: 065
     Dates: start: 20170222, end: 20170223
  11. MEROPENEM. [Concomitant]
     Active Substance: MEROPENEM
     Indication: NEUTROPENIA
     Route: 065
     Dates: start: 20170223, end: 20170227
  12. PARACETAMOL [Concomitant]
     Active Substance: ACETAMINOPHEN
     Indication: PAIN
  13. OMEPRAZOLE. [Concomitant]
     Active Substance: OMEPRAZOLE
     Indication: PROPHYLAXIS
  14. FILGRASTIM [Concomitant]
     Active Substance: FILGRASTIM
     Indication: NEUTROPENIA
     Route: 065
     Dates: start: 20170222, end: 20170223
  15. LEVOFLOXACIN. [Concomitant]
     Active Substance: LEVOFLOXACIN
     Indication: NEUTROPENIA
     Route: 065
     Dates: start: 20170228, end: 20170303

REACTIONS (1)
  - Thrombocytopenia [Recovered/Resolved]

NARRATIVE: CASE EVENT DATE: 20170215
